FAERS Safety Report 13065740 (Version 9)
Quarter: 2021Q2

REPORT INFORMATION
  Report Type: Report from Study
  Country: CA (occurrence: CA)
  Receive Date: 20161227
  Receipt Date: 20210513
  Transmission Date: 20210716
  Serious: Yes (Hospitalization)
  Sender: FDA-Public Use
  Company Number: CA-VERTEX PHARMACEUTICALS-2016-006799

PATIENT
  Age: 36 Year
  Sex: Female
  Weight: 50 kg

DRUGS (3)
  1. ORKAMBI [Suspect]
     Active Substance: IVACAFTOR\LUMACAFTOR
     Dosage: 1 DF, QD (AT NIGHT)
     Route: 048
     Dates: start: 20170104, end: 2017
  2. ORKAMBI [Suspect]
     Active Substance: IVACAFTOR\LUMACAFTOR
     Dosage: 2 DF (200/125 MG EACH), BID
     Route: 048
     Dates: start: 2017, end: 20170413
  3. ORKAMBI [Suspect]
     Active Substance: IVACAFTOR\LUMACAFTOR
     Indication: CYSTIC FIBROSIS
     Dosage: 2 DOSAGE FORM, BID
     Route: 048
     Dates: start: 20161128, end: 20161219

REACTIONS (13)
  - Apathy [Not Recovered/Not Resolved]
  - Pulmonary pain [Recovered/Resolved]
  - Pulmonary function test decreased [Recovered/Resolved]
  - Fatigue [Not Recovered/Not Resolved]
  - Cough [Not Recovered/Not Resolved]
  - General physical health deterioration [Unknown]
  - Wheezing [Not Recovered/Not Resolved]
  - Productive cough [Recovered/Resolved]
  - Dyspnoea [Not Recovered/Not Resolved]
  - Infective pulmonary exacerbation of cystic fibrosis [Recovered/Resolved]
  - Increased bronchial secretion [Recovered/Resolved]
  - Dry eye [Not Recovered/Not Resolved]
  - Asthenia [Not Recovered/Not Resolved]

NARRATIVE: CASE EVENT DATE: 2016
